FAERS Safety Report 16625475 (Version 2)
Quarter: 2019Q4

REPORT INFORMATION
  Report Type: Spontaneous
  Country: US (occurrence: US)
  Receive Date: 20190724
  Receipt Date: 20191010
  Transmission Date: 20200122
  Serious: No
  Sender: FDA-Public Use
  Company Number: US-PFIZER INC-2019183952

PATIENT
  Age: 55 Year
  Sex: Female
  Weight: 72.56 kg

DRUGS (1)
  1. LYRICA [Suspect]
     Active Substance: PREGABALIN
     Indication: FIBROMYALGIA
     Dosage: 50 MG, 4X/DAY
     Route: 048
     Dates: start: 201606

REACTIONS (3)
  - Nervousness [Not Recovered/Not Resolved]
  - Weight increased [Unknown]
  - Fatigue [Unknown]

NARRATIVE: CASE EVENT DATE: 2016
